FAERS Safety Report 9788151 (Version 2)
Quarter: 2014Q1

REPORT INFORMATION
  Report Type: Report from Study
  Country: CA (occurrence: CA)
  Receive Date: 20131230
  Receipt Date: 20140203
  Transmission Date: 20141002
  Serious: Yes (Hospitalization)
  Sender: FDA-Public Use
  Company Number: CA-ROCHE-1321272

PATIENT
  Age: 71 Year
  Sex: Male
  Weight: 83.3 kg

DRUGS (20)
  1. VEMURAFENIB [Suspect]
     Indication: MALIGNANT MELANOMA
     Dosage: LAST DOSE ON 10.JAN.2014
     Route: 048
     Dates: start: 20131205, end: 20131211
  2. VEMURAFENIB [Suspect]
     Route: 048
     Dates: start: 20140118
  3. HYDROCHLOROTHIAZIDE [Concomitant]
     Indication: HYPERTENSION
     Route: 048
     Dates: start: 2008, end: 20131213
  4. NIFEDIPINE [Concomitant]
     Indication: HYPERTENSION
     Route: 048
     Dates: start: 1993
  5. ENALAPRIL [Concomitant]
     Indication: HYPERTENSION
     Route: 048
     Dates: start: 1993
  6. SYNTHROID [Concomitant]
     Indication: HYPOTHYROIDISM
     Route: 048
     Dates: start: 2008
  7. ALFUZOSIN [Concomitant]
     Dosage: INDICATION: PROPHYLAXIS PROSTATIC HYPERPLASIA
     Route: 048
     Dates: start: 2009
  8. CRESTOR [Concomitant]
     Indication: HYPERCHOLESTEROLAEMIA
     Route: 048
     Dates: start: 2012
  9. HYDROMORPHONE [Concomitant]
     Indication: PAIN
     Route: 048
     Dates: start: 201309, end: 20131224
  10. HYDROMORPHONE [Concomitant]
     Indication: NEUROPATHY PERIPHERAL
  11. WELLBUTRIN [Concomitant]
     Indication: DEPRESSION
     Route: 048
     Dates: start: 2006
  12. CLONAZEPAM [Concomitant]
     Indication: DEPRESSION
     Route: 048
     Dates: start: 1998
  13. CELEBREX [Concomitant]
     Indication: ARTHRITIS
     Route: 048
     Dates: start: 201303, end: 20131213
  14. SENOKOT [Concomitant]
     Indication: CONSTIPATION
     Route: 048
     Dates: start: 201311
  15. COLACE [Concomitant]
     Indication: CONSTIPATION
     Route: 048
     Dates: start: 201311
  16. LYRICA [Concomitant]
     Indication: NEUROPATHY PERIPHERAL
     Route: 048
     Dates: start: 201306
  17. LYRICA [Concomitant]
     Indication: PAIN
  18. HEPARIN [Concomitant]
     Dosage: INDICATION :  PREVENTATIVE
     Route: 058
     Dates: start: 20131212, end: 20131213
  19. PLACEBO [Suspect]
     Indication: MALIGNANT MELANOMA
     Dosage: LAST DOSE ON 10.DEC.2013
     Route: 048
     Dates: start: 20131205, end: 20131211
  20. PLACEBO [Suspect]
     Route: 048
     Dates: start: 20140118

REACTIONS (2)
  - Muscle spasms [Unknown]
  - Renal failure acute [Recovered/Resolved]
